FAERS Safety Report 9052713 (Version 2)
Quarter: 2013Q1

REPORT INFORMATION
  Report Type: Spontaneous
  Country: CA (occurrence: CA)
  Receive Date: 20130207
  Receipt Date: 20130211
  Transmission Date: 20140127
  Serious: Yes (Hospitalization, Other)
  Sender: FDA-Public Use
  Company Number: CA-TEVA-382795USA

PATIENT
  Age: 73 Year
  Sex: Male

DRUGS (3)
  1. PAROXETINE [Suspect]
     Indication: DEPRESSION
     Dosage: STOPPED 2007 OR 2008
     Dates: start: 2004
  2. CRESTOR [Concomitant]
  3. UNSPECIFED HIGH BLOOD PRESSURE MEDICATION [Concomitant]
     Indication: HYPERTENSION

REACTIONS (16)
  - Head injury [Not Recovered/Not Resolved]
  - Brain injury [Not Recovered/Not Resolved]
  - Central nervous system lesion [Not Recovered/Not Resolved]
  - Angiopathy [Not Recovered/Not Resolved]
  - Fall [Unknown]
  - Suicidal ideation [Unknown]
  - Communication disorder [Unknown]
  - Neck pain [Not Recovered/Not Resolved]
  - Dizziness [Unknown]
  - Headache [Not Recovered/Not Resolved]
  - Nightmare [Unknown]
  - Sleep disorder [Not Recovered/Not Resolved]
  - Confusional state [Unknown]
  - Musculoskeletal pain [Not Recovered/Not Resolved]
  - Movement disorder [Unknown]
  - Feeling abnormal [Unknown]
